FAERS Safety Report 4666368-6 (Version None)
Quarter: 2005Q2

REPORT INFORMATION
  Report Type: 
  Country: None (occurrence: None)
  Receive Date: 20050519
  Receipt Date: 20050202
  Transmission Date: 20051028
  Serious: Yes (Hospitalization, Other)
  Sender: FDA-Public Use
  Company Number: GB-BRISTOL-MYERS SQUIBB COMPANY-12849527

PATIENT
  Age: 28 Year
  Sex: Male
  Weight: 89 kg

DRUGS (4)
  1. ABILIFY [Suspect]
     Indication: SCHIZOPHRENIA, PARANOID TYPE
     Dosage: 15 TO 20 MG/DAY
     Route: 048
     Dates: start: 20041201
  2. CLOZAPINE [Concomitant]
     Indication: SCHIZOPHRENIA, PARANOID TYPE
     Route: 048
     Dates: start: 20041201
  3. HALOPERIDOL [Concomitant]
     Route: 048
     Dates: start: 20050101
  4. DIAZEPAM [Concomitant]
     Dosage: REDUCED TO AS NECESSARY
     Route: 048

REACTIONS (7)
  - ANOREXIA [None]
  - BLOOD PRESSURE FLUCTUATION [None]
  - FEELING ABNORMAL [None]
  - HEART RATE INCREASED [None]
  - MIOSIS [None]
  - NO THERAPEUTIC RESPONSE [None]
  - PSYCHOTIC DISORDER [None]
